FAERS Safety Report 15000972 (Version 2)
Quarter: 2019Q2

REPORT INFORMATION
  Report Type: Spontaneous
  Country: US (occurrence: US)
  Receive Date: 20180612
  Receipt Date: 20190517
  Transmission Date: 20190711
  Serious: No
  Sender: FDA-Public Use
  Company Number: US-SA-2018SA143799

PATIENT
  Sex: Female

DRUGS (2)
  1. ZANTAC 75 [Suspect]
     Active Substance: RANITIDINE HYDROCHLORIDE
     Indication: GASTROINTESTINAL TRACT IRRITATION
  2. ZANTAC 75 [Suspect]
     Active Substance: RANITIDINE HYDROCHLORIDE
     Indication: DYSPEPSIA
     Dosage: 75 MG, UNK
     Route: 065

REACTIONS (1)
  - Drug ineffective [Unknown]
